FAERS Safety Report 20905723 (Version 1)
Quarter: 2022Q2

REPORT INFORMATION
  Report Type: Spontaneous
  Country: FR (occurrence: FR)
  Receive Date: 20220602
  Receipt Date: 20220602
  Transmission Date: 20220721
  Serious: Yes (Congenital Anomaly, Other)
  Sender: FDA-Public Use
  Company Number: FR-ABBVIE-21K-056-3944250-00

PATIENT
  Sex: Female

DRUGS (1)
  1. VALPROATE SODIUM [Suspect]
     Active Substance: VALPROATE SODIUM
     Indication: Maternal exposure timing unspecified
     Route: 064

REACTIONS (28)
  - Opitz trigonocephaly syndrome [Unknown]
  - Arnold-Chiari malformation [Unknown]
  - Scoliosis [Unknown]
  - Syringomyelia [Unknown]
  - Knee deformity [Unknown]
  - Congenital musculoskeletal disorder of limbs [Unknown]
  - Disturbance in attention [Unknown]
  - Learning disorder [Unknown]
  - Complication associated with device [Unknown]
  - Visual impairment [Unknown]
  - Paraesthesia [Unknown]
  - Learning disability [Unknown]
  - Joint laxity [Unknown]
  - Fatigue [Unknown]
  - Psychomotor skills impaired [Unknown]
  - Cardiac murmur [Unknown]
  - Myocardial infarction [Unknown]
  - Malformation venous [Unknown]
  - Speech disorder [Unknown]
  - Language disorder [Unknown]
  - Nasal disorder [Unknown]
  - Pharyngeal disorder [Unknown]
  - Ear disorder [Unknown]
  - Multiple congenital abnormalities [Unknown]
  - Strabismus [Unknown]
  - Nystagmus [Unknown]
  - Ear infection [Unknown]
  - Foetal exposure during pregnancy [Unknown]

NARRATIVE: CASE EVENT DATE: 20000911
